FAERS Safety Report 5634317-X (Version None)
Quarter: 2008Q1

REPORT INFORMATION
  Report Type: 
  Country: None (occurrence: None)
  Receive Date: 20080131
  Receipt Date: 20070601
  Transmission Date: 20080703
  Serious: Yes (Other)
  Sender: FDA-Public Use
  Company Number: 2007-BP-06829PF

PATIENT
  Age: 67 Year
  Sex: Female
  Weight: 53 kg

DRUGS (9)
  1. SPIRIVA [Suspect]
     Indication: CHRONIC OBSTRUCTIVE PULMONARY DISEASE
     Dosage: 18 MCG (18 MCG, 1 IN 1 D), IH
     Route: 025
     Dates: start: 20061101
  2. CHANTIX [Suspect]
     Indication: SMOKING CESSATION THERAPY
     Dosage: 0.5 MG (NR), PO
     Route: 048
     Dates: start: 20070513
  3. AMPICILLIN [Suspect]
     Indication: URINARY TRACT INFECTION
     Dosage: 1000 MG (NR, 250MG QID), NR
  4. ALBUTEROL [Concomitant]
  5. ADVAIR (SERETIDE) [Concomitant]
  6. PREDNISONE TAB [Concomitant]
  7. ASPIRIN (ACETYLADLICYLIC ACID) [Concomitant]
  8. PROCARDIA [Concomitant]
  9. CELEBREX [Concomitant]

REACTIONS (5)
  - DRUG INEFFECTIVE [None]
  - NAUSEA [None]
  - PATHOGEN RESISTANCE [None]
  - POLLAKIURIA [None]
  - URINARY TRACT INFECTION [None]
